FAERS Safety Report 18683327 (Version 1)
Quarter: 2020Q4

REPORT INFORMATION
  Report Type: Spontaneous
  Country: US (occurrence: US)
  Receive Date: 20201230
  Receipt Date: 20201230
  Transmission Date: 20210114
  Serious: Yes (Other)
  Sender: FDA-Public Use
  Company Number: US-009507513-2012USA011954

PATIENT
  Age: 70 Year
  Sex: Female

DRUGS (6)
  1. FOSAMAX [Suspect]
     Active Substance: ALENDRONATE SODIUM
     Dosage: UNK
  2. LIDOCAINE. [Suspect]
     Active Substance: LIDOCAINE
     Indication: OSTEOARTHRITIS
     Dosage: 1 PATCH BID
  3. MELOXICAM. [Concomitant]
     Active Substance: MELOXICAM
     Indication: INTERVERTEBRAL DISC DEGENERATION
     Dosage: UNK
     Dates: end: 201301
  4. VOLTAREN [Suspect]
     Active Substance: DICLOFENAC SODIUM
     Indication: BURSITIS
     Dosage: UNK
  5. VOLTAREN [Suspect]
     Active Substance: DICLOFENAC SODIUM
     Indication: OSTEOARTHRITIS
     Dosage: QD, PKG ID: 363481684474
     Route: 061
     Dates: start: 20121113
  6. TRAMADOL HYDROCHLORIDE. [Concomitant]
     Active Substance: TRAMADOL HYDROCHLORIDE
     Dosage: UNK
     Dates: end: 201301

REACTIONS (10)
  - Ligament rupture [Not Recovered/Not Resolved]
  - Product use in unapproved indication [Unknown]
  - Joint injury [Not Recovered/Not Resolved]
  - Bone pain [Unknown]
  - Therapeutic response unexpected [Unknown]
  - Gastrointestinal disorder [Unknown]
  - Product administered at inappropriate site [Unknown]
  - Meniscus injury [Not Recovered/Not Resolved]
  - Chest discomfort [Unknown]
  - Parathyroid tumour benign [Recovered/Resolved]

NARRATIVE: CASE EVENT DATE: 20121113
